FAERS Safety Report 6643822-9 (Version None)
Quarter: 2010Q1

REPORT INFORMATION
  Report Type: 
  Country: None (occurrence: None)
  Receive Date: 20100316
  Receipt Date: 20100309
  Transmission Date: 20100710
  Serious: Yes (Hospitalization)
  Sender: FDA-Public Use
  Company Number: 2010SP002228

PATIENT
  Age: 58 Year
  Sex: Female

DRUGS (2)
  1. PEG-INTRON [Suspect]
     Indication: HEPATITIS C
     Dosage: 80 MCG;QW;SC
     Route: 058
     Dates: start: 20061101, end: 20070610
  2. COPEGUS [Suspect]
     Indication: HEPATITIS C
     Dosage: 600 MG;QD
     Dates: start: 20061101, end: 20070610

REACTIONS (2)
  - PYREXIA [None]
  - RAYNAUD'S PHENOMENON [None]
